FAERS Safety Report 20746247 (Version 1)
Quarter: 2022Q2

REPORT INFORMATION
  Report Type: Report from Study
  Country: US (occurrence: US)
  Receive Date: 20220425
  Receipt Date: 20220425
  Transmission Date: 20220720
  Serious: No
  Sender: FDA-Public Use
  Company Number: US-MIRM-000374

PATIENT
  Sex: Female
  Weight: 24.494 kg

DRUGS (5)
  1. LIVMARLI [Suspect]
     Active Substance: MARALIXIBAT CHLORIDE
     Indication: Pruritus
     Route: 048
     Dates: start: 20211025
  2. Hydrozyaine [Concomitant]
     Indication: Product used for unknown indication
     Route: 048
  3. 1328777 (GLOBALC3Sep19): Ursodial [Concomitant]
     Indication: Product used for unknown indication
     Route: 048
  4. 1328878 (GLOBALC3Sep19): Vitamin E [Concomitant]
     Indication: Product used for unknown indication
     Route: 048
  5. 2928000 (GLOBALC3Sep19): Guanfacine [Concomitant]
     Indication: Product used for unknown indication
     Route: 048

REACTIONS (2)
  - Hepatic enzyme increased [Unknown]
  - Cholelithiasis [Unknown]
